FAERS Safety Report 8951698 (Version 1)
Quarter: 2012Q4

REPORT INFORMATION
  Report Type: Report from Study
  Country: US (occurrence: US)
  Receive Date: 20121204
  Receipt Date: 20121204
  Transmission Date: 20130627
  Serious: Yes (Hospitalization)
  Sender: FDA-Public Use
  Company Number: US-ROCHE-1162235

PATIENT
  Sex: Female

DRUGS (3)
  1. CAPECITABINE [Suspect]
     Indication: NEOPLASM MALIGNANT
     Route: 065
  2. 5-FU [Concomitant]
  3. ELOXATIN [Concomitant]

REACTIONS (4)
  - Gastrointestinal disorder [Unknown]
  - Erythema [Unknown]
  - Constipation [Unknown]
  - Hyperaesthesia [Unknown]
